FAERS Safety Report 5305390-3 (Version None)
Quarter: 2007Q2

REPORT INFORMATION
  Report Type: 
  Country: None (occurrence: None)
  Receive Date: 20070424
  Receipt Date: 20070409
  Transmission Date: 20071010
  Serious: Yes (Hospitalization)
  Sender: FDA-Public Use
  Company Number: US-ELI_LILLY_AND_COMPANY-US200704001813

PATIENT
  Age: 67 Year
  Sex: Female
  Weight: 99.773 kg

DRUGS (18)
  1. BYETTA [Suspect]
     Indication: DIABETES MELLITUS NON-INSULIN-DEPENDENT
     Dosage: 5 UG, 2/D
     Route: 058
     Dates: start: 20061201, end: 20070101
  2. BYETTA [Suspect]
     Dosage: 10 UG, 2/D
     Route: 058
     Dates: start: 20070101, end: 20070301
  3. HYZAAR [Concomitant]
     Indication: BLOOD PRESSURE INCREASED
     Dosage: 100 UNK, DAILY (1/D)
     Dates: start: 20060101
  4. LEXAPRO [Concomitant]
     Indication: NERVOUSNESS
     Dosage: 10 MG, DAILY (1/D)
     Dates: start: 20050101
  5. CRESTOR [Concomitant]
     Indication: BLOOD CHOLESTEROL
     Dosage: 5 MG, DAILY (1/D)
     Dates: start: 20070201
  6. COREG [Concomitant]
     Indication: CARDIAC DISORDER
     Dosage: 3.125 UNK, 2/D
     Dates: start: 20070301
  7. PLAVIX [Concomitant]
     Indication: ARTERIAL DISORDER
     Dosage: 75 MG, DAILY (1/D)
     Dates: start: 20070323
  8. LASIX [Concomitant]
     Indication: SWELLING
     Dosage: 40 MG, AS NEEDED
     Dates: start: 20030101
  9. LASIX [Concomitant]
     Dosage: 20 MG, DAILY (1/D)
     Dates: start: 20030101
  10. ASPIRIN [Concomitant]
     Indication: CARDIAC DISORDER
     Dosage: 81 MG, 2/D
     Dates: start: 20050101
  11. NOVOLIN 70/30 [Concomitant]
     Indication: DIABETES MELLITUS
     Dosage: 80 U, EACH MORNING
  12. NOVOLIN 70/30 [Concomitant]
     Dosage: 70 U, EACH EVENING
  13. ALPHAGAN [Concomitant]
     Indication: GLAUCOMA
     Dosage: 1 GTT, 2/D
     Route: 047
  14. COMBIVENT [Concomitant]
     Indication: BRONCHITIS
     Dosage: UNK, AS NEEDED
     Route: 055
  15. DUONEB [Concomitant]
     Indication: BRONCHIAL DISORDER
     Dosage: UNK, 2/D
     Route: 055
     Dates: start: 20070301
  16. NEURONTIN [Concomitant]
     Indication: NEUROPATHY
     Dosage: 300 MG, DAILY (1/D)
     Dates: start: 20050101
  17. OSTEO BI-FLEX [Concomitant]
     Indication: ARTHRALGIA
     Dosage: UNK, 2/D
     Dates: start: 20020101
  18. CENTRUM SILVER [Concomitant]
     Indication: NUTRITIONAL SUPPORT
     Dosage: 1 UNK, DAILY (1/D)

REACTIONS (1)
  - CORONARY ARTERY OCCLUSION [None]
